FAERS Safety Report 9927341 (Version 1)
Quarter: 2014Q1

REPORT INFORMATION
  Report Type: Spontaneous
  Country: IE (occurrence: IE)
  Receive Date: 20140226
  Receipt Date: 20140226
  Transmission Date: 20141002
  Serious: Yes (Hospitalization)
  Sender: FDA-Public Use
  Company Number: US-ASTRAZENECA-2014SE12562

PATIENT
  Age: 122 Day
  Sex: Male

DRUGS (9)
  1. SYNAGIS [Suspect]
     Indication: PRODUCT USED FOR UNKNOWN INDICATION
     Route: 030
     Dates: start: 20131219, end: 20131219
  2. SYNAGIS [Suspect]
     Indication: PRODUCT USED FOR UNKNOWN INDICATION
     Route: 030
     Dates: start: 20140217, end: 20140217
  3. URSOFALK [Concomitant]
     Indication: PRODUCT USED FOR UNKNOWN INDICATION
  4. ZOTON [Concomitant]
     Indication: PRODUCT USED FOR UNKNOWN INDICATION
  5. GALFER [Concomitant]
     Indication: PRODUCT USED FOR UNKNOWN INDICATION
  6. GAVISCON [Concomitant]
     Indication: PRODUCT USED FOR UNKNOWN INDICATION
  7. AQUADEKS [Concomitant]
     Indication: PRODUCT USED FOR UNKNOWN INDICATION
  8. VITAMIN K [Concomitant]
     Indication: PRODUCT USED FOR UNKNOWN INDICATION
  9. RIFADIN [Concomitant]
     Indication: PRODUCT USED FOR UNKNOWN INDICATION

REACTIONS (3)
  - Infection [Recovering/Resolving]
  - Nasopharyngitis [Recovering/Resolving]
  - Cough [Recovering/Resolving]
